FAERS Safety Report 7939353-6 (Version None)
Quarter: 2011Q4

REPORT INFORMATION
  Report Type: 
  Country: None (occurrence: None)
  Receive Date: 20111125
  Receipt Date: 20101214
  Transmission Date: 20120403
  Serious: No
  Sender: FDA-Public Use
  Company Number: US-BAYER-2011-074130

PATIENT
  Sex: Male

DRUGS (1)
  1. LEUKINE [Suspect]

REACTIONS (2)
  - BURNING SENSATION [None]
  - ARTHRALGIA [None]
